FAERS Safety Report 8458363-6 (Version None)
Quarter: 2012Q2

REPORT INFORMATION
  Report Type: 
  Country: None (occurrence: None)
  Receive Date: 20120622
  Receipt Date: 20120319
  Transmission Date: 20120825
  Serious: Yes (Hospitalization)
  Sender: FDA-Public Use
  Company Number: GB-US-EMD SERONO, INC.-7114230

PATIENT
  Sex: Female

DRUGS (1)
  1. REBIF [Suspect]
     Indication: PRODUCT USED FOR UNKNOWN INDICATION
     Route: 058
     Dates: start: 20000601, end: 20120213

REACTIONS (5)
  - SPEECH DISORDER [None]
  - HAEMOGLOBIN DECREASED [None]
  - MALAISE [None]
  - SCAR EXCISION [None]
  - TONSILLITIS [None]
